FAERS Safety Report 9927767 (Version 4)
Quarter: 2014Q1

REPORT INFORMATION
  Report Type: Spontaneous
  Country: BE (occurrence: BE)
  Receive Date: 20140227
  Receipt Date: 20140330
  Transmission Date: 20141002
  Serious: Yes (Death, Hospitalization)
  Sender: FDA-Public Use
  Company Number: BE-BRISTOL-MYERS SQUIBB COMPANY-20063970

PATIENT
  Age: 70 Year
  Sex: Female

DRUGS (5)
  1. YERVOY [Suspect]
     Indication: METASTATIC MALIGNANT MELANOMA
     Dosage: 3RD INF PLANNED ON 20JAN14?200MG
     Route: 042
     Dates: start: 20131211, end: 20131231
  2. BRIVANIB ALANINATE [Concomitant]
  3. THYROXINE [Concomitant]
  4. PANTOPRAZOLE [Concomitant]
  5. LORAZEPAM [Concomitant]

REACTIONS (3)
  - Malignant neoplasm progression [Fatal]
  - Renal failure acute [Fatal]
  - Bronchopneumonia [Fatal]
